FAERS Safety Report 4599233-3 (Version None)
Quarter: 2005Q1

REPORT INFORMATION
  Report Type: 
  Country: None (occurrence: None)
  Receive Date: 20050302
  Receipt Date: 20050302
  Transmission Date: 20050727
  Serious: Yes (Life-Threatening, Hospitalization)
  Sender: FDA-Public Use
  Company Number: None

PATIENT
  Age: 57 Year
  Sex: Male
  Weight: 80 kg

DRUGS (12)
  1. GATIFLOXACIN [Suspect]
     Indication: BRONCHITIS
     Dosage: 400 MG ONE PO DAILY
     Route: 048
     Dates: start: 20050211, end: 20050218
  2. GLYBURIDE [Concomitant]
  3. METFORMIN HCL [Concomitant]
  4. SERTRALINE HCL [Concomitant]
  5. TERAZOSIN [Concomitant]
  6. SIMVASTATIN [Concomitant]
  7. ATENOLOL [Concomitant]
  8. ROSIGLITAZONE [Concomitant]
  9. ENALAPRIL [Concomitant]
  10. FUROSEMIDE [Concomitant]
  11. POTASSIUM CHLORIDE [Concomitant]
  12. ASPIRIN [Concomitant]

REACTIONS (6)
  - BLOOD CREATININE INCREASED [None]
  - BLOOD POTASSIUM INCREASED [None]
  - BLOOD UREA INCREASED [None]
  - DIARRHOEA [None]
  - HAEMATEMESIS [None]
  - URINE OUTPUT DECREASED [None]
